FAERS Safety Report 5463858-3 (Version None)
Quarter: 2007Q3

REPORT INFORMATION
  Report Type: 
  Country: None (occurrence: None)
  Receive Date: 20070816
  Receipt Date: 20070403
  Transmission Date: 20080115
  Serious: Yes (Other)
  Sender: FDA-Public Use
  Company Number: WAES 0704USA00512

PATIENT
  Sex: Male

DRUGS (1)
  1. INDOCIN [Suspect]
     Dosage: PO
     Route: 048

REACTIONS (1)
  - CONVULSION [None]
